FAERS Safety Report 20030688 (Version 1)
Quarter: 2021Q4

REPORT INFORMATION
  Report Type: Spontaneous
  Country: GB (occurrence: GB)
  Receive Date: 20211103
  Receipt Date: 20211103
  Transmission Date: 20220303
  Serious: Yes (Death)
  Sender: FDA-Public Use
  Company Number: None

PATIENT
  Age: 60 Year
  Sex: Male

DRUGS (4)
  1. FLUDARABINE [Suspect]
     Active Substance: FLUDARABINE PHOSPHATE
     Indication: Allogenic bone marrow transplantation therapy
     Dosage: 150MG/KG TOTAL
     Route: 042
     Dates: start: 20210827, end: 20210830
  2. BUSULFAN [Suspect]
     Active Substance: BUSULFAN
     Indication: Allogenic bone marrow transplantation therapy
     Dosage: 6.4MG/KG
     Route: 042
     Dates: start: 20210828, end: 20210829
  3. CYCLOSPORINE [Suspect]
     Active Substance: CYCLOSPORINE
     Indication: Allogenic bone marrow transplantation therapy
     Dosage: 2.5MG/KG LOADING THEN 1.5MG/KG
     Route: 048
     Dates: start: 20210901
  4. THIOTEPA [Suspect]
     Active Substance: THIOTEPA
     Indication: Allogenic bone marrow transplantation therapy
     Dosage: 5MG/KG
     Route: 042
     Dates: start: 20210827, end: 20210830

REACTIONS (1)
  - Neurotoxicity [Fatal]
